FAERS Safety Report 8536318-0 (Version None)
Quarter: 2012Q3

REPORT INFORMATION
  Report Type: 
  Country: None (occurrence: None)
  Receive Date: 20120725
  Receipt Date: 20120720
  Transmission Date: 20120928
  Serious: Yes (Disabling)
  Sender: FDA-Public Use
  Company Number: FR-ROCHE-1091010

PATIENT
  Age: 51 Year
  Sex: Female

DRUGS (2)
  1. DILANTIN [Suspect]
     Indication: CONVULSION
     Dosage: 15 MG/KG
     Route: 042
     Dates: start: 20120110, end: 20120110
  2. CLONAZEPAM [Suspect]
     Indication: CONVULSION
     Route: 042
     Dates: start: 20120110, end: 20120110

REACTIONS (3)
  - PERIPHERAL ISCHAEMIA [None]
  - SKIN NECROSIS [None]
  - LOCALISED OEDEMA [None]
